FAERS Safety Report 7907915-8 (Version None)
Quarter: 2011Q4

REPORT INFORMATION
  Report Type: 
  Country: None (occurrence: None)
  Receive Date: 20111110
  Receipt Date: 20111031
  Transmission Date: 20120403
  Serious: Yes (Hospitalization)
  Sender: FDA-Public Use
  Company Number: US-BAXTER-2011BH034589

PATIENT
  Sex: Female

DRUGS (4)
  1. DIANEAL [Suspect]
     Indication: PERITONEAL DIALYSIS
     Route: 033
     Dates: start: 20100101
  2. DIANEAL [Suspect]
     Indication: PERITONEAL DIALYSIS
     Route: 033
     Dates: start: 20100101
  3. DIANEAL [Suspect]
     Route: 033
     Dates: start: 20100101
  4. DIANEAL [Suspect]
     Route: 033
     Dates: start: 20100101

REACTIONS (2)
  - PERITONITIS BACTERIAL [None]
  - SINUS HEADACHE [None]
